FAERS Safety Report 11157971 (Version 1)
Quarter: 2015Q2

REPORT INFORMATION
  Report Type: Spontaneous
  Country: US (occurrence: None)
  Receive Date: 20150511
  Receipt Date: 20150511
  Transmission Date: 20150821
  Serious: Yes (Other)
  Sender: FDA-Public Use
  Company Number: FK201402384

PATIENT
  Age: 42 Year
  Sex: Female
  Weight: 72.4 kg

DRUGS (3)
  1. STERILE VANCOMYCIN HYDROCHLORIDE [Suspect]
     Active Substance: VANCOMYCIN HYDROCHLORIDE
     Indication: FEBRILE NEUTROPENIA
     Dosage: NOT OTHERWISE SPECIFIED
     Route: 042
     Dates: start: 20140405, end: 20140414
  2. MEROPENEM (MEROPENEM) [Concomitant]
     Active Substance: MEROPENEM
  3. STERILE VANCOMYCIN HYDROCHLORIDE [Suspect]
     Active Substance: VANCOMYCIN HYDROCHLORIDE
     Indication: BACTERIAL INFECTION
     Dosage: NOT OTHERWISE SPECIFIED
     Route: 042
     Dates: start: 20140405, end: 20140414

REACTIONS (1)
  - Red man syndrome [None]

NARRATIVE: CASE EVENT DATE: 20140405
